FAERS Safety Report 12587715 (Version 1)
Quarter: 2016Q3

REPORT INFORMATION
  Report Type: Spontaneous
  Country: US (occurrence: US)
  Receive Date: 20160725
  Receipt Date: 20160725
  Transmission Date: 20161109
  Serious: No
  Sender: FDA-Public Use
  Company Number: US-GLAXOSMITHKLINE-US2016100720

PATIENT
  Sex: Female

DRUGS (8)
  1. ADVAIR DISKUS [Suspect]
     Active Substance: FLUTICASONE PROPIONATE\SALMETEROL XINAFOATE
     Dosage: 100/50 MCG
     Dates: start: 2012
  2. SINGULAIR [Suspect]
     Active Substance: MONTELUKAST SODIUM
     Indication: ASTHMA
     Dosage: 10 MG, QD
     Route: 048
     Dates: end: 2014
  3. FLONASE [Suspect]
     Active Substance: FLUTICASONE PROPIONATE
     Indication: MULTIPLE ALLERGIES
     Dosage: UNK
     Route: 045
  4. BREO ELLIPTA [Suspect]
     Active Substance: FLUTICASONE FUROATE\VILANTEROL TRIFENATATE
     Indication: ASTHMA
     Dosage: 1 PUFF(S), QD
     Route: 055
     Dates: start: 201601
  5. ADVAIR DISKUS [Suspect]
     Active Substance: FLUTICASONE PROPIONATE\SALMETEROL XINAFOATE
     Indication: ASTHMA
     Dosage: 1 PUFF(S), BID  250/50 MCG
     Route: 055
     Dates: end: 201601
  6. VERAMYST [Suspect]
     Active Substance: FLUTICASONE FUROATE
     Indication: CHRONIC SINUSITIS
  7. FLONASE [Suspect]
     Active Substance: FLUTICASONE PROPIONATE
     Indication: CHRONIC SINUSITIS
  8. VERAMYST [Suspect]
     Active Substance: FLUTICASONE FUROATE
     Indication: MULTIPLE ALLERGIES
     Dosage: UNK
     Route: 045

REACTIONS (11)
  - Throat irritation [Unknown]
  - Blood glucose increased [Unknown]
  - Nasal disorder [Unknown]
  - Drug dose omission [Unknown]
  - Malaise [Unknown]
  - Drug ineffective [Unknown]
  - Dysphonia [Not Recovered/Not Resolved]
  - Nasal polyps [Unknown]
  - Nasal polypectomy [Unknown]
  - Hypoaesthesia [Recovered/Resolved]
  - Chronic sinusitis [Unknown]

NARRATIVE: CASE EVENT DATE: 2012
